FAERS Safety Report 9019459 (Version 1)
Quarter: 2013Q1

REPORT INFORMATION
  Report Type: Spontaneous
  Country: FR (occurrence: FR)
  Receive Date: 20130118
  Receipt Date: 20130118
  Transmission Date: 20140127
  Serious: Yes (Hospitalization)
  Sender: FDA-Public Use
  Company Number: FR-ASTRAZENECA-2013SE02456

PATIENT
  Age: 72 Year
  Sex: Male

DRUGS (5)
  1. INEXIUM [Suspect]
     Route: 048
  2. CYMBALTA [Suspect]
     Route: 065
  3. XATRAL [Suspect]
     Route: 065
  4. COUMADINE [Suspect]
     Route: 065
  5. NOVONORM [Suspect]
     Route: 048

REACTIONS (2)
  - Cholestasis [Unknown]
  - Septic arthritis staphylococcal [Unknown]
